FAERS Safety Report 5339362-X (Version None)
Quarter: 2007Q2

REPORT INFORMATION
  Report Type: 
  Country: None (occurrence: None)
  Receive Date: 20070322
  Receipt Date: 20061004
  Transmission Date: 20071010
  Serious: Yes (Other)
  Sender: FDA-Public Use
  Company Number: 200613671BCC

PATIENT
  Sex: Female
  Weight: 49.8957 kg

DRUGS (1)
  1. ALEVE [Suspect]
     Indication: HEADACHE
     Dosage: ORAL
     Route: 048

REACTIONS (1)
  - HAEMATOCHEZIA [None]
